FAERS Safety Report 8298626-0 (Version None)
Quarter: 2012Q2

REPORT INFORMATION
  Report Type: 
  Country: None (occurrence: None)
  Receive Date: 20120419
  Receipt Date: 20120409
  Transmission Date: 20120825
  Serious: Yes (Hospitalization)
  Sender: FDA-Public Use
  Company Number: JP-EISAI INC-E7389-02278-CLI-JP

PATIENT
  Sex: Male
  Weight: 59 kg

DRUGS (10)
  1. OXYCODONE HCL [Concomitant]
  2. EPIRUBICIN HYDROCHLORIDE [Suspect]
     Indication: LIPOSARCOMA
     Route: 041
     Dates: start: 20120202
  3. LOXONIN [Concomitant]
  4. POSTERISAN [Concomitant]
  5. EPIRUBICIN HYDROCHLORIDE [Suspect]
     Route: 041
     Dates: start: 20120112, end: 20120119
  6. AZUNOL [Concomitant]
     Route: 048
  7. LEVOFLOXACIN [Concomitant]
  8. LANSOPRAZOLE [Concomitant]
  9. OXYCONTIN [Concomitant]
  10. PROCHLORPERAZINE [Concomitant]

REACTIONS (1)
  - ILEUS [None]
